FAERS Safety Report 16362094 (Version 1)
Quarter: 2019Q3

REPORT INFORMATION
  Report Type: Spontaneous
  Country: US (occurrence: US)
  Receive Date: 20190525
  Receipt Date: 20190525
  Transmission Date: 20191004
  Serious: Yes (Disabling)
  Sender: FDA-Public Use
  Company Number: None

PATIENT
  Age: 80 Year
  Sex: Female
  Weight: 62.1 kg

DRUGS (12)
  1. ROPINERAL 1.5 [Concomitant]
  2. LEVOFLOXACIN, GENERIC FOR LEVAQUIN 500 MG TABLET [Suspect]
     Active Substance: LEVOFLOXACIN
     Indication: KIDNEY INFECTION
     Route: 042
     Dates: start: 20190421, end: 20190501
  3. LORAZAPAM [Concomitant]
     Active Substance: LORAZEPAM
  4. AMLODIPINE [Concomitant]
     Active Substance: AMLODIPINE BESYLATE
  5. ZETIA [Concomitant]
     Active Substance: EZETIMIBE
  6. PRALUENT 150 MG INJECTION [Concomitant]
  7. LEVOTHYROXINE. [Concomitant]
     Active Substance: LEVOTHYROXINE
  8. LEVOFLOXACIN, GENERIC FOR LEVAQUIN 500 MG TABLET [Suspect]
     Active Substance: LEVOFLOXACIN
     Indication: SEPSIS
     Route: 042
     Dates: start: 20190421, end: 20190501
  9. OLMESARTAN [Concomitant]
     Active Substance: OLMESARTAN
  10. ASPIRIN. [Concomitant]
     Active Substance: ASPIRIN
  11. FLUOXETINE, [Concomitant]
  12. PRILOSEC OTC, [Concomitant]

REACTIONS (6)
  - Pain in extremity [None]
  - Gait inability [None]
  - Fatigue [None]
  - Anaemia [None]
  - Abdominal pain [None]
  - Muscular weakness [None]

NARRATIVE: CASE EVENT DATE: 20190421
